FAERS Safety Report 5385166-1 (Version None)
Quarter: 2007Q3

REPORT INFORMATION
  Report Type: 
  Country: None (occurrence: None)
  Receive Date: 20070712
  Receipt Date: 20070704
  Transmission Date: 20080115
  Serious: No
  Sender: FDA-Public Use
  Company Number: DE-AVENTIS-200711774DE

PATIENT
  Sex: Male

DRUGS (1)
  1. ARAVA [Suspect]
     Dosage: DOSE: NOT REPORTED
     Route: 048

REACTIONS (1)
  - TRANSMISSION OF DRUG VIA SEMEN [None]
